FAERS Safety Report 22243619 (Version 4)
Quarter: 2023Q2

REPORT INFORMATION
  Report Type: Spontaneous
  Country: DE (occurrence: None)
  Receive Date: 20230424
  Receipt Date: 20230612
  Transmission Date: 20230722
  Serious: Yes (Other)
  Sender: FDA-Public Use
  Company Number: DE-Merck Healthcare KGaA-9397775

PATIENT
  Age: 54 Year
  Sex: Female
  Weight: 56 kg

DRUGS (3)
  1. REBIF [Suspect]
     Active Substance: INTERFERON BETA-1A
     Indication: Relapsing-remitting multiple sclerosis
     Dates: start: 201107
  2. REBIF [Suspect]
     Active Substance: INTERFERON BETA-1A
     Dates: start: 201505, end: 201802
  3. REBIF [Suspect]
     Active Substance: INTERFERON BETA-1A
     Dates: start: 202005, end: 202103

REACTIONS (2)
  - Deafness unilateral [Recovered/Resolved]
  - Tinnitus [Recovered/Resolved]

NARRATIVE: CASE EVENT DATE: 20220601
